FAERS Safety Report 17605549 (Version 1)
Quarter: 2020Q1

REPORT INFORMATION
  Report Type: Spontaneous
  Country: US (occurrence: US)
  Receive Date: 20200331
  Receipt Date: 20200331
  Transmission Date: 20200409
  Serious: Yes (Death)
  Sender: FDA-Public Use
  Company Number: None

PATIENT
  Age: 62 Year
  Sex: Female

DRUGS (21)
  1. RABEPRAZOLE [Concomitant]
     Active Substance: RABEPRAZOLE
  2. ONDANSETRON [Concomitant]
     Active Substance: ONDANSETRON
  3. SOD. CHLORIDE [Concomitant]
  4. MORPHINE SUL [Concomitant]
     Active Substance: MORPHINE SULFATE
  5. METHYLPRED [Concomitant]
     Active Substance: METHYLPREDNISOLONE
  6. OXYCODONE [Concomitant]
     Active Substance: OXYCODONE
  7. PROCHLORPER [Concomitant]
  8. CIPRO [Concomitant]
     Active Substance: CIPROFLOXACIN HYDROCHLORIDE
  9. ATORVASTATIN [Concomitant]
     Active Substance: ATORVASTATIN
  10. IBRANCE [Suspect]
     Active Substance: PALBOCICLIB
     Indication: PRODUCT USED FOR UNKNOWN INDICATION
     Route: 048
     Dates: start: 20200207
  11. PROMETHAZINE [Concomitant]
     Active Substance: PROMETHAZINE HYDROCHLORIDE
  12. AMOXICILLIN. [Concomitant]
     Active Substance: AMOXICILLIN
  13. LETROZOLE. [Concomitant]
     Active Substance: LETROZOLE
  14. CEPACOL [Concomitant]
     Active Substance: BENZOCAINE
  15. GABAPENTIN. [Concomitant]
     Active Substance: GABAPENTIN
  16. HYDROCO/APAP [Concomitant]
     Active Substance: ACETAMINOPHEN\HYDROCODONE
  17. AZITHROMYCIN ANHYDROUS. [Concomitant]
     Active Substance: AZITHROMYCIN ANHYDROUS
  18. VITAMIN C [Concomitant]
     Active Substance: ASCORBIC ACID
  19. MORPHINE SUL [Concomitant]
     Active Substance: MORPHINE SULFATE
  20. FLUCONAZOLE. [Concomitant]
     Active Substance: FLUCONAZOLE
  21. BISACODYL. [Concomitant]
     Active Substance: BISACODYL

REACTIONS (1)
  - Death [None]
